FAERS Safety Report 6908388-4 (Version None)
Quarter: 2010Q3

REPORT INFORMATION
  Report Type: 
  Country: None (occurrence: None)
  Receive Date: 20100708
  Receipt Date: 20090405
  Transmission Date: 20110219
  Serious: Yes (Hospitalization, Other)
  Sender: FDA-Public Use
  Company Number: 2009195469

PATIENT
  Age: 59 Year
  Sex: Female
  Weight: 981.6 kg

DRUGS (2)
  1. CHANTIX [Suspect]
     Indication: SMOKING CESSATION THERAPY
     Dates: end: 20090201
  2. DRUG, UNSPECIFIED [Concomitant]

REACTIONS (1)
  - MANIA [None]
